FAERS Safety Report 25868658 (Version 2)
Quarter: 2025Q4

REPORT INFORMATION
  Report Type: Report from Study
  Country: CA (occurrence: CA)
  Receive Date: 20251001
  Receipt Date: 20251107
  Transmission Date: 20260118
  Serious: No
  Sender: EMD SERONO INC
  Company Number: CA-Merck Healthcare KGaA-2025049216

PATIENT
  Sex: Male

DRUGS (3)
  1. SAIZEN [Suspect]
     Active Substance: SOMATROPIN
     Indication: Chronic kidney disease
  2. SAIZEN [Suspect]
     Active Substance: SOMATROPIN
  3. CHOLECALCIFEROL [Concomitant]
     Active Substance: CHOLECALCIFEROL
     Indication: Product used for unknown indication

REACTIONS (2)
  - Joint swelling [Unknown]
  - Pain [Unknown]
